FAERS Safety Report 20662887 (Version 2)
Quarter: 2022Q4

REPORT INFORMATION
  Report Type: Other
  Country: JP (occurrence: JP)
  Receive Date: 20220401
  Receipt Date: 20221128
  Transmission Date: 20230113
  Serious: Yes (Other)
  Sender: FDA-Public Use
  Company Number: JP-CHUGAI-2021019888

PATIENT
  Age: 66 Year
  Sex: Female
  Weight: 40.5 kg

DRUGS (9)
  1. OBINUTUZUMAB [Suspect]
     Active Substance: OBINUTUZUMAB
     Indication: Follicular lymphoma
     Dosage: 1000 MILLIGRAM, QD
     Route: 041
     Dates: start: 20200718, end: 20200718
  2. OBINUTUZUMAB [Suspect]
     Active Substance: OBINUTUZUMAB
     Dosage: 1000 MILLIGRAM, QD
     Route: 041
     Dates: start: 20200725, end: 20200725
  3. OBINUTUZUMAB [Suspect]
     Active Substance: OBINUTUZUMAB
     Dosage: 1000 MILLIGRAM, QD
     Route: 041
     Dates: start: 20200801, end: 20200801
  4. OBINUTUZUMAB [Suspect]
     Active Substance: OBINUTUZUMAB
     Dosage: 1000 MILLIGRAM, QD
     Route: 041
     Dates: start: 20200814, end: 20200814
  5. OBINUTUZUMAB [Suspect]
     Active Substance: OBINUTUZUMAB
     Dosage: 1000 MILLIGRAM, QD
     Route: 041
     Dates: start: 20200911, end: 20200911
  6. OBINUTUZUMAB [Suspect]
     Active Substance: OBINUTUZUMAB
     Dosage: 1000 MILLIGRAM, QD
     Route: 041
     Dates: start: 20201009, end: 20201009
  7. OBINUTUZUMAB [Suspect]
     Active Substance: OBINUTUZUMAB
     Dosage: 1000 MILLIGRAM, QD
     Route: 041
     Dates: start: 20201106, end: 20201106
  8. OBINUTUZUMAB [Suspect]
     Active Substance: OBINUTUZUMAB
     Dosage: SHE RECEIVED SUBSEQUENT DOSE OF IV DRIP OBINUTUZUMAB ON 14/JUN/2021, 16/AUG/2021 AND 11/OCT/2021.
     Route: 041
     Dates: start: 20201204, end: 20201204
  9. BENDAMUSTINE HYDROCHLORIDE [Suspect]
     Active Substance: BENDAMUSTINE HYDROCHLORIDE
     Indication: Follicular lymphoma
     Dosage: MOST RECENT DOSE: 08/DEC/2020
     Route: 041
     Dates: start: 20200720, end: 20201208

REACTIONS (1)
  - Myelosuppression [Recovered/Resolved]
